FAERS Safety Report 23839106 (Version 1)
Quarter: 2024Q2

REPORT INFORMATION
  Report Type: Spontaneous
  Country: GB (occurrence: GB)
  Receive Date: 20240509
  Receipt Date: 20240509
  Transmission Date: 20240716
  Serious: Yes (Life-Threatening, Hospitalization, Other)
  Sender: FDA-Public Use
  Company Number: GB-009507513-2405GBR001428

PATIENT

DRUGS (1)
  1. PEMBROLIZUMAB [Suspect]
     Active Substance: PEMBROLIZUMAB
     Indication: Malignant melanoma stage III
     Dosage: 400 MILLIGRAM, EVERY 6 WEEKS; ROUTE ADMINISTRATION: INFUSION

REACTIONS (4)
  - Immune-mediated myositis [Recovered/Resolved]
  - Immune-mediated myocarditis [Unknown]
  - Immune-mediated myasthenia gravis [Recovered/Resolved]
  - Immune-mediated hepatitis [Recovered/Resolved]
